FAERS Safety Report 8763820 (Version 2)
Quarter: 2013Q4

REPORT INFORMATION
  Report Type: Report from Study
  Country: JP (occurrence: JP)
  Receive Date: 20120831
  Receipt Date: 20131031
  Transmission Date: 20140711
  Serious: Yes (Other)
  Sender: FDA-Public Use
  Company Number: JP-009507513-2012SP014422

PATIENT
  Age: 45 Year
  Sex: Male
  Weight: 53 kg

DRUGS (6)
  1. PEGINTERFERON ALFA-2B [Suspect]
     Indication: HEPATITIS C
     Dosage: 1.5 ?G/KG, QW
     Route: 058
     Dates: start: 20120208
  2. REBETOL [Suspect]
     Indication: HEPATITIS C
     Dosage: 600 MG, QD
     Route: 048
     Dates: start: 20120208
  3. TELAVIC [Suspect]
     Indication: HEPATITIS C
     Dosage: 2250 MG, QD
     Route: 048
     Dates: start: 20120208, end: 20120210
  4. URSO [Concomitant]
     Indication: HEPATITIS C
     Dosage: FORMULATION: POR
     Route: 048
     Dates: start: 20100119
  5. URSO [Concomitant]
     Indication: CHOLELITHIASIS
     Dosage: 600 MG, QD
     Route: 048
  6. ADETPHOS [Concomitant]
     Indication: DIZZINESS
     Dosage: 1T/DAY, AS NEEDED
     Route: 048
     Dates: start: 20120307, end: 20120404

REACTIONS (1)
  - Renal impairment [Recovered/Resolved]
